FAERS Safety Report 7095440-9 (Version None)
Quarter: 2010Q4

REPORT INFORMATION
  Report Type: 
  Country: None (occurrence: None)
  Receive Date: 20101111
  Receipt Date: 20101108
  Transmission Date: 20110411
  Serious: Yes (Hospitalization)
  Sender: FDA-Public Use
  Company Number: FR-BRISTOL-MYERS SQUIBB COMPANY-15374416

PATIENT
  Age: 30 Year
  Sex: Male

DRUGS (4)
  1. ABILIFY [Suspect]
     Indication: SCHIZOPHRENIA
     Dosage: INCREASED TO 45MG
     Route: 048
     Dates: start: 20100101
  2. ZYPREXA [Concomitant]
  3. LOXAPAC [Concomitant]
  4. NOZINAN [Concomitant]

REACTIONS (2)
  - AGGRESSION [None]
  - DELUSION [None]
